FAERS Safety Report 24695607 (Version 1)
Quarter: 2024Q4

REPORT INFORMATION
  Report Type: Spontaneous
  Country: GB (occurrence: GB)
  Receive Date: 20241204
  Receipt Date: 20241204
  Transmission Date: 20250114
  Serious: Yes (Other)
  Sender: ADVANZ PHARMA
  Company Number: None

PATIENT

DRUGS (13)
  1. PREDNISOLONE [Suspect]
     Active Substance: PREDNISOLONE
     Dosage: UNK
  2. BISOPROLOL [Concomitant]
     Active Substance: BISOPROLOL
     Dosage: 7.5 MG, QD (7.5 MG TABLETS ONE TO BE TAKEN IN THE MORNING-OM REDUCED)
  3. VENTOLIN [Concomitant]
     Active Substance: ALBUTEROL SULFATE
     Dosage: 2 PUFF, PRN (100 MICROGRAMS / DOSE EVOHALER TWO PUFFS AS REQUIRED)
  4. RAMIPRIL [Concomitant]
     Active Substance: RAMIPRIL
     Dosage: 2.5 MG, QD (2.5 MG CAPSULES ONE TO BE TAKEN EACH DAY-OM)
  5. PREGABALIN [Concomitant]
     Active Substance: PREGABALIN
     Dosage: 75 MG, BID (75 MG CAPSULES ONE TO BE TAKEN TWICE A DAY AS PER CLINIC-OM AND ON)
  6. EDOXABAN [Concomitant]
     Active Substance: EDOXABAN
     Dosage: UNK
  7. CosmoCol Orange Flavour oral powder sachets [Concomitant]
     Dosage: UNK
     Route: 048
  8. TRELEGY ELLIPTA [Concomitant]
     Active Substance: FLUTICASONE FUROATE\UMECLIDINIUM BROMIDE\VILANTEROL TRIFENATATE
     Dosage: 1 PUFF, QD (92 / 55 / 22 MICROGRAMS / DOSE DRY POWDER INHALER ONE PUFF TO BE INHALED EACH DAY-OM)
  9. OMEPRAZOLE [Concomitant]
     Active Substance: OMEPRAZOLE
     Dosage: 20 MG, QD (20 MG GASTRO-RESISTANT CAPSULES ONE TO BE TAKEN EACH DAY-OM -INCREASED FOR BONE PROTECTIO
  10. FUROSEMIDE [Concomitant]
     Active Substance: FUROSEMIDE
     Dosage: UNK
  11. ATORVASTATIN [Concomitant]
     Active Substance: ATORVASTATIN
     Dosage: 10 MG, QD (10 MG TABLETS ONE TO BE TAKEN EACH DAY-ON)
  12. CARBAMAZEPINE [Concomitant]
     Active Substance: CARBAMAZEPINE
     Dosage: 2 DOSAGE FORM, TID (200 MG TABLETS TWO TO BE TAKEN THREE TIMES DAILY)
  13. CARBOCYSTEINE [Concomitant]
     Active Substance: CARBOCYSTEINE
     Dosage: 375 MG, TID (375 MG CAPSULES THREE TIMES A DAY)

REACTIONS (1)
  - Steroid diabetes [Recovered/Resolved]
